FAERS Safety Report 21285615 (Version 1)
Quarter: 2022Q3

REPORT INFORMATION
  Report Type: Spontaneous
  Country: CH (occurrence: CH)
  Receive Date: 20220902
  Receipt Date: 20220902
  Transmission Date: 20221027
  Serious: Yes (Life-Threatening, Hospitalization)
  Sender: FDA-Public Use
  Company Number: None

PATIENT
  Age: 49 Year
  Sex: Female

DRUGS (40)
  1. CLONAZEPAM [Suspect]
     Active Substance: CLONAZEPAM
     Dates: start: 20220630
  2. FENTANYL [Suspect]
     Active Substance: FENTANYL
     Dosage: PATIENT CONTROLLED ANALGESIA (PCA)
     Route: 062
     Dates: start: 20220601, end: 20220601
  3. FENTANYL [Suspect]
     Active Substance: FENTANYL
     Dosage: PATIENT CONTROLLED ANALGESIA (PCA)
     Route: 062
     Dates: start: 20220610, end: 20220712
  4. FENTANYL [Suspect]
     Active Substance: FENTANYL
     Dosage: PATIENT CONTROLLED ANALGESIA (PCA)
     Route: 062
     Dates: start: 20220713
  5. XANAX [Suspect]
     Active Substance: ALPRAZOLAM
     Dosage: 2X4MG IN RESERVE?DAILY DOSE: 1 MILLIGRAM
  6. LORAZEPAM [Suspect]
     Active Substance: LORAZEPAM
     Dosage: 3X1MG IN RESERVE; AS NECESSARY
  7. CEFTRIAXONE [Concomitant]
     Active Substance: CEFTRIAXONE
     Dates: start: 20220420, end: 20220607
  8. Amoxicilline Acid/ Clavulanique [Concomitant]
     Dates: start: 20220530, end: 20220607
  9. PIPERACILLIN SODIUM\TAZOBACTAM SODIUM [Concomitant]
     Active Substance: PIPERACILLIN SODIUM\TAZOBACTAM SODIUM
     Dates: start: 20220613, end: 20220626
  10. DAPTOMYCIN [Concomitant]
     Active Substance: DAPTOMYCIN
     Route: 042
     Dates: start: 20220613, end: 20220621
  11. DAPTOMYCIN [Concomitant]
     Active Substance: DAPTOMYCIN
     Route: 042
     Dates: start: 20220805
  12. METRONIDAZOLE [Concomitant]
     Active Substance: METRONIDAZOLE
     Route: 048
     Dates: start: 20220617, end: 20220706
  13. METRONIDAZOLE [Concomitant]
     Active Substance: METRONIDAZOLE
     Route: 042
     Dates: start: 20220804
  14. METRONIDAZOLE [Concomitant]
     Active Substance: METRONIDAZOLE
     Route: 048
     Dates: start: 20220805
  15. CEFEPIME [Concomitant]
     Active Substance: CEFEPIME HYDROCHLORIDE
     Dates: start: 20220730, end: 20220802
  16. VANCOMYCIN [Concomitant]
     Active Substance: VANCOMYCIN
     Dates: start: 20220730, end: 20220802
  17. ENOXAPARIN SODIUM [Concomitant]
     Active Substance: ENOXAPARIN SODIUM
  18. MORPHINE [Concomitant]
     Active Substance: MORPHINE
     Dosage: AS NECESSARY
     Route: 048
  19. TIZANIDINE [Concomitant]
     Active Substance: TIZANIDINE
     Dates: start: 20220615
  20. DAFALGAN [Concomitant]
     Active Substance: ACETAMINOPHEN
  21. PREGABALIN [Concomitant]
     Active Substance: PREGABALIN
  22. CELEBREX [Concomitant]
     Active Substance: CELECOXIB
     Dates: start: 20220602
  23. MELATONIN [Concomitant]
     Active Substance: MELATONIN
     Dates: start: 20220615
  24. TRAZODONE HYDROCHLORIDE [Concomitant]
     Active Substance: TRAZODONE HYDROCHLORIDE
  25. NEXIUM [Concomitant]
     Active Substance: ESOMEPRAZOLE MAGNESIUM
  26. PROGESTERONE [Concomitant]
     Active Substance: PROGESTERONE
     Dates: start: 20220707
  27. ZOMIG [Concomitant]
     Active Substance: ZOLMITRIPTAN
     Dates: start: 20220604
  28. IMOVANE [Concomitant]
     Active Substance: ZOPICLONE
  29. VENTOLIN [Concomitant]
     Active Substance: ALBUTEROL SULFATE
     Dosage: AS NECESSARY
  30. FOLIC ACID [Concomitant]
     Active Substance: FOLIC ACID
  31. CHOLECALCIFEROL [Concomitant]
     Active Substance: CHOLECALCIFEROL
  32. CALCIUM\CHOLECALCIFEROL [Concomitant]
     Active Substance: CALCIUM\CHOLECALCIFEROL
  33. VITAMIN B12 [Concomitant]
     Active Substance: CYANOCOBALAMIN
  34. FOLIC ACID [Concomitant]
     Active Substance: FOLIC ACID
  35. NICOTINELL [Concomitant]
     Active Substance: NICOTINE
     Route: 062
  36. ESTRADIOL [Concomitant]
     Active Substance: ESTRADIOL
     Route: 062
     Dates: start: 20220707
  37. FOSFOMYCIN SODIUM [Concomitant]
     Active Substance: FOSFOMYCIN SODIUM
     Route: 042
     Dates: start: 20220804
  38. SODIUM PICOSULFATE [Concomitant]
     Active Substance: SODIUM PICOSULFATE
  39. DROPERIDOL [Concomitant]
     Active Substance: DROPERIDOL
     Dosage: AS NECESSARY
  40. ONDANSETRON [Concomitant]
     Active Substance: ONDANSETRON
     Dosage: AS NECESSARY

REACTIONS (2)
  - Respiratory arrest [Recovered/Resolved]
  - Cardio-respiratory arrest [Recovered/Resolved]

NARRATIVE: CASE EVENT DATE: 20220805
